FAERS Safety Report 8924732 (Version 1)
Quarter: 2012Q4

REPORT INFORMATION
  Report Type: 
  Country: SE (occurrence: SE)
  Receive Date: 20121126
  Receipt Date: 20121126
  Transmission Date: 20130627
  Serious: Yes (Other)
  Sender: FDA-Public Use
  Company Number: SE-ROCHE-1158657

PATIENT
  Sex: Female

DRUGS (7)
  1. DIAZEPAM [Suspect]
     Indication: ANXIETY
     Route: 065
  2. CANNABIS [Concomitant]
  3. AMPHETAMINES [Concomitant]
  4. OXAZEPAM [Concomitant]
  5. ZOPICLONE [Concomitant]
  6. BUPRENORPHINE [Concomitant]
  7. MORPHINE [Concomitant]

REACTIONS (1)
  - Drug dependence [Unknown]
